FAERS Safety Report 7897948-2 (Version None)
Quarter: 2011Q4

REPORT INFORMATION
  Report Type: 
  Country: None (occurrence: None)
  Receive Date: 20111107
  Receipt Date: 20111103
  Transmission Date: 20120403
  Serious: Yes (Other)
  Sender: FDA-Public Use
  Company Number: US-VERTEX PHARMACEUTICALS INC.-AE-2011-002402

PATIENT
  Sex: Female

DRUGS (11)
  1. PEGASYS [Concomitant]
     Indication: HEPATITIS C
     Dates: start: 20110710, end: 20111018
  2. RIBAVIRIN [Concomitant]
     Indication: HEPATITIS C
     Dates: start: 20110710, end: 20111005
  3. INCIVEK [Suspect]
     Indication: HEPATITIS C
     Dates: start: 20110710, end: 20111005
  4. FLONASE [Concomitant]
  5. IBUPROFEN [Concomitant]
  6. INDERAL [Concomitant]
  7. ALBUTEROL [Concomitant]
  8. DOXEPIN [Concomitant]
  9. PAXIL [Concomitant]
  10. XANAX [Concomitant]
  11. ZOMIG [Concomitant]

REACTIONS (6)
  - PHOTOPHOBIA [None]
  - OEDEMA PERIPHERAL [None]
  - ANAL PRURITUS [None]
  - DRUG RASH WITH EOSINOPHILIA AND SYSTEMIC SYMPTOMS [None]
  - CHILLS [None]
  - PYREXIA [None]
